FAERS Safety Report 4335286-5 (Version None)
Quarter: 2004Q2

REPORT INFORMATION
  Report Type: 
  Country: None (occurrence: None)
  Receive Date: 20040409
  Receipt Date: 20040227
  Transmission Date: 20050107
  Serious: Yes (Death, Life-Threatening)
  Sender: FDA-Public Use
  Company Number: 200410651JP

PATIENT
  Age: 76 Year
  Sex: Female
  Weight: 33.3 kg

DRUGS (2)
  1. TAXOTERE [Suspect]
     Indication: GASTRIC CANCER
     Route: 041
     Dates: start: 20040218, end: 20040218
  2. ANTINEOPLASTIC AND IMMUNOSUPPRESSIVE AGENTS [Suspect]
     Indication: GASTRIC CANCER
     Route: 048
     Dates: start: 20040218, end: 20040220

REACTIONS (10)
  - ANAEMIA [None]
  - CEREBRAL INFARCTION [None]
  - FALL [None]
  - GASTRIC CANCER [None]
  - HAEMORRHAGE [None]
  - MALIGNANT NEOPLASM PROGRESSION [None]
  - MELAENA [None]
  - PYREXIA [None]
  - RESPIRATORY DISORDER [None]
  - VOMITING [None]
